FAERS Safety Report 5613449-6 (Version None)
Quarter: 2008Q1

REPORT INFORMATION
  Report Type: 
  Country: None (occurrence: None)
  Receive Date: 20080129
  Receipt Date: 20070118
  Transmission Date: 20080703
  Serious: Yes (Hospitalization)
  Sender: FDA-Public Use
  Company Number: DSJ-2008-00546

PATIENT
  Age: 73 Year
  Sex: Female

DRUGS (1)
  1. SALIGREN (CAPSULE) [Suspect]
     Indication: SJOGREN'S SYNDROME
     Dosage: 30 MG (30 MG 1 IN 1 D); PER ORAL
     Route: 048
     Dates: start: 20061225, end: 20061225

REACTIONS (1)
  - PANCREATIC HAEMORRHAGE [None]
